FAERS Safety Report 10035952 (Version 2)
Quarter: 2014Q2

REPORT INFORMATION
  Report Type: Spontaneous
  Country: VE (occurrence: VE)
  Receive Date: 20140325
  Receipt Date: 20140401
  Transmission Date: 20141212
  Serious: Yes (Death)
  Sender: FDA-Public Use
  Company Number: VE-AMGEN-VENSP2014020292

PATIENT
  Age: 67 Year
  Sex: Female

DRUGS (7)
  1. VECTIBIX [Suspect]
     Indication: COLON CANCER METASTATIC
     Dosage: UNK
     Route: 042
  2. VECTIBIX [Suspect]
     Indication: METASTASES TO LIVER
  3. XELODA [Concomitant]
     Indication: COLON CANCER METASTATIC
     Dosage: UNK
  4. XELODA [Concomitant]
     Indication: METASTASES TO LIVER
  5. XELODA [Concomitant]
     Indication: METASTASES TO LUNG
  6. FORMALIN [Concomitant]
     Dosage: UNK
  7. BCG [Concomitant]
     Dosage: UNK

REACTIONS (2)
  - Respiratory arrest [Fatal]
  - Metastases to lung [Fatal]
